FAERS Safety Report 9753887 (Version 3)
Quarter: 2015Q3

REPORT INFORMATION
  Report Type: Spontaneous
  Country: US (occurrence: US)
  Receive Date: 20131213
  Receipt Date: 20150805
  Transmission Date: 20151125
  Serious: No
  Sender: FDA-Public Use
  Company Number: US-GILEAD-2010-0027517

PATIENT
  Age: 33 Year
  Sex: Female

DRUGS (19)
  1. NADOLOL. [Concomitant]
     Active Substance: NADOLOL
  2. LEVETIRACETAM. [Concomitant]
     Active Substance: LEVETIRACETAM
  3. KEPPRA [Concomitant]
     Active Substance: LEVETIRACETAM
  4. NORVASC [Concomitant]
     Active Substance: AMLODIPINE BESYLATE
  5. LEVOTHROID [Concomitant]
     Active Substance: LEVOTHYROXINE SODIUM
  6. FOLIC ACID. [Concomitant]
     Active Substance: FOLIC ACID
  7. CITRUCEL [Concomitant]
     Active Substance: METHYLCELLULOSE (4000 MPA.S)
  8. LETAIRIS [Suspect]
     Active Substance: AMBRISENTAN
     Indication: PULMONARY ARTERIAL HYPERTENSION
     Route: 048
     Dates: start: 20090530
  9. HYDROCHLOROTHIAZIDE/TRIAMTERENE [Concomitant]
  10. PREDNISONE. [Concomitant]
     Active Substance: PREDNISONE
  11. IMURAN [Concomitant]
     Active Substance: AZATHIOPRINE
  12. ZOVIRAX [Concomitant]
     Active Substance: ACYCLOVIR
  13. INTEGRA [Concomitant]
  14. KLOR-CON [Concomitant]
     Active Substance: POTASSIUM CHLORIDE
  15. REVATIO [Concomitant]
     Active Substance: SILDENAFIL CITRATE
  16. VITAMIN C [Concomitant]
     Active Substance: ASCORBIC ACID
  17. LEVAQUIN [Concomitant]
     Active Substance: LEVOFLOXACIN
  18. PLAQUENIL [Concomitant]
     Active Substance: HYDROXYCHLOROQUINE SULFATE
  19. MULTIVITAMIN [Concomitant]
     Active Substance: VITAMINS

REACTIONS (1)
  - Menstruation delayed [Unknown]
